FAERS Safety Report 6794804-8 (Version None)
Quarter: 2010Q2

REPORT INFORMATION
  Report Type: 
  Country: None (occurrence: None)
  Receive Date: 20100624
  Receipt Date: 20100624
  Transmission Date: 20101027
  Serious: Yes (Other)
  Sender: FDA-Public Use
  Company Number: None

PATIENT
  Age: 37 Year
  Sex: Male
  Weight: 102.0593 kg

DRUGS (1)
  1. CYMBALTA [Suspect]
     Indication: DEPRESSION
     Dosage: 150 MG DAILY PO
     Route: 048
     Dates: start: 20090501, end: 20100601

REACTIONS (3)
  - ABNORMAL BEHAVIOUR [None]
  - ECONOMIC PROBLEM [None]
  - PATHOLOGICAL GAMBLING [None]
